FAERS Safety Report 6368584-4 (Version None)
Quarter: 2009Q3

REPORT INFORMATION
  Report Type: 
  Country: None (occurrence: None)
  Receive Date: 20090922
  Receipt Date: 20090615
  Transmission Date: 20100115
  Serious: No
  Sender: FDA-Public Use
  Company Number: US-BRISTOL-MYERS SQUIBB COMPANY-14663686

PATIENT
  Age: 83 Year
  Sex: Female
  Weight: 59 kg

DRUGS (4)
  1. BUSPAR [Suspect]
     Indication: PANIC ATTACK
     Dates: start: 20090601
  2. PAXIL [Concomitant]
  3. ZOCOR [Concomitant]
     Indication: ANGINA PECTORIS
  4. ZOCOR [Concomitant]
     Indication: BLOOD PRESSURE

REACTIONS (1)
  - PANIC ATTACK [None]
